FAERS Safety Report 19213770 (Version 2)
Quarter: 2021Q3

REPORT INFORMATION
  Report Type: Spontaneous
  Country: US (occurrence: US)
  Receive Date: 20210505
  Receipt Date: 20210806
  Transmission Date: 20211014
  Serious: Yes (Hospitalization)
  Sender: FDA-Public Use
  Company Number: US-BRISTOL-MYERS SQUIBB COMPANY-BMS-2021-041163

PATIENT
  Age: 56 Year
  Sex: Female
  Weight: 72.57 kg

DRUGS (3)
  1. TRABECTEDIN [Suspect]
     Active Substance: TRABECTEDIN
     Indication: LEIOMYOSARCOMA
     Dosage: 2.1 MILLIGRAM, Q3WK
     Route: 042
     Dates: start: 20200818
  2. IPILIMUMAB [Suspect]
     Active Substance: IPILIMUMAB
     Indication: PRODUCT USED FOR UNKNOWN INDICATION
     Dosage: 69 MILLIGRAM, Q2WK
     Route: 042
     Dates: start: 20200901
  3. NIVOLUMAB [Suspect]
     Active Substance: NIVOLUMAB
     Indication: LEIOMYOSARCOMA
     Dosage: 208 MILLIGRAM, Q2WK
     Route: 042
     Dates: start: 20200901

REACTIONS (2)
  - Intentional product use issue [Unknown]
  - Non-cardiac chest pain [Not Recovered/Not Resolved]

NARRATIVE: CASE EVENT DATE: 20210425
